FAERS Safety Report 4533050-5 (Version None)
Quarter: 2004Q4

REPORT INFORMATION
  Report Type: 
  Country: None (occurrence: None)
  Receive Date: 20041221
  Receipt Date: 20041210
  Transmission Date: 20050328
  Serious: Yes (Hospitalization)
  Sender: FDA-Public Use
  Company Number: 200414689FR

PATIENT
  Age: 52 Year
  Sex: Female
  Weight: 55 kg

DRUGS (6)
  1. LOVENOX [Suspect]
     Route: 058
     Dates: start: 20041029, end: 20041101
  2. ACTRAPID [Suspect]
     Route: 058
     Dates: start: 20041029, end: 20041031
  3. PREVISCAN [Concomitant]
     Route: 048
  4. RIVOTRIL [Suspect]
     Route: 048
  5. AUGMENTIN '125' [Suspect]
     Dates: start: 20041029, end: 20041115
  6. NOVOMIX [Suspect]
     Route: 058
     Dates: start: 20041029, end: 20041116

REACTIONS (1)
  - GRANULOCYTOPENIA [None]
